FAERS Safety Report 17350791 (Version 4)
Quarter: 2020Q3

REPORT INFORMATION
  Report Type: Report from Study
  Country: None (occurrence: IL)
  Receive Date: 20200130
  Receipt Date: 20200708
  Transmission Date: 20201102
  Serious: Yes (Other)
  Sender: FDA-Public Use
  Company Number: IL-ABBVIE-19K-082-2853655-00

PATIENT
  Age: 87 Year
  Sex: Male
  Weight: 85 kg

DRUGS (15)
  1. RITUXIMAB. [Suspect]
     Active Substance: RITUXIMAB
     Route: 065
     Dates: start: 20190926, end: 20190926
  2. VENCLEXTA [Suspect]
     Active Substance: VENETOCLAX
     Indication: CHRONIC LYMPHOCYTIC LEUKAEMIA
     Route: 048
     Dates: start: 20190501, end: 20190507
  3. VENCLEXTA [Suspect]
     Active Substance: VENETOCLAX
     Dosage: DAILY DOSE 300MG, HYDRATION?ORAL ?DAILY DOSE 400MG, HYDRATION?ORAL
     Route: 048
     Dates: start: 20190529, end: 20190602
  4. VENCLEXTA [Suspect]
     Active Substance: VENETOCLAX
     Route: 048
     Dates: start: 201906
  5. ALLORIL [Concomitant]
     Active Substance: ALLOPURINOL
     Indication: PROPHYLAXIS
     Route: 065
     Dates: start: 20190501
  6. RITUXIMAB. [Suspect]
     Active Substance: RITUXIMAB
     Route: 065
     Dates: start: 20191027, end: 20191027
  7. VENCLEXTA [Suspect]
     Active Substance: VENETOCLAX
     Route: 048
     Dates: start: 20190516, end: 20190521
  8. VENCLEXTA [Suspect]
     Active Substance: VENETOCLAX
     Route: 048
     Dates: start: 20190508, end: 20190515
  9. TRITACE [Concomitant]
     Active Substance: RAMIPRIL
     Indication: HYPERTENSION
     Route: 065
     Dates: start: 20141120
  10. VENCLEXTA [Suspect]
     Active Substance: VENETOCLAX
     Route: 048
     Dates: start: 20190522, end: 20190528
  11. RITUXIMAB. [Suspect]
     Active Substance: RITUXIMAB
     Indication: CD20 ANTIGEN POSITIVE
     Route: 065
     Dates: start: 20190728, end: 20190728
  12. RITUXIMAB. [Suspect]
     Active Substance: RITUXIMAB
     Route: 065
     Dates: start: 20190827, end: 20190827
  13. CARDILOC [Concomitant]
     Active Substance: BISOPROLOL FUMARATE
     Indication: HYPERTENSION
     Route: 065
     Dates: start: 20141120
  14. VENCLEXTA [Suspect]
     Active Substance: VENETOCLAX
     Route: 048
     Dates: start: 20190603, end: 20190616
  15. MAGNOX [Concomitant]
     Indication: HYPOMAGNESAEMIA
     Route: 065
     Dates: start: 20190505, end: 20190507

REACTIONS (3)
  - Neutropenia [Recovered/Resolved]
  - Neutropenia [Unknown]
  - Malignant melanoma [Not Recovered/Not Resolved]

NARRATIVE: CASE EVENT DATE: 20190617
